FAERS Safety Report 7916657 (Version 2)
Quarter: 2012Q4

REPORT INFORMATION
  Report Type: Report from Study
  Country: US (occurrence: US)
  Receive Date: 20110427
  Receipt Date: 20121119
  Transmission Date: 20130627
  Serious: Yes (Hospitalization)
  Sender: FDA-Public Use
  Company Number: US-ASTRAZENECA-2011SE22181

PATIENT
  Age: 65 Year
  Sex: Male

DRUGS (13)
  1. PRILOSEC [Suspect]
     Route: 048
  2. SAXAGLIPTIN [Suspect]
     Indication: TYPE 2 DIABETES MELLITUS
     Route: 048
     Dates: start: 20101013, end: 20110112
  3. SAXAGLIPTIN [Suspect]
     Indication: TYPE 2 DIABETES MELLITUS
     Route: 048
     Dates: start: 20110330
  4. NOVOLOG [Suspect]
     Indication: TYPE 2 DIABETES MELLITUS
     Dosage: 150 INTERNATIONAL UNIT
     Route: 065
     Dates: end: 20101122
  5. NOVOLOG [Suspect]
     Indication: TYPE 2 DIABETES MELLITUS
     Dosage: UNKNOWN DOSE
     Route: 065
     Dates: start: 20101122, end: 20120827
  6. NOVOLOG [Suspect]
     Indication: TYPE 2 DIABETES MELLITUS
     Dosage: 200 IU
     Route: 065
     Dates: start: 20120827
  7. EZETIMIBE [Concomitant]
     Dates: start: 20101008
  8. ASPIRIN [Concomitant]
     Dates: start: 20101008
  9. BETA BLOCKER [Concomitant]
  10. NITRATES [Concomitant]
  11. ANGIOTENSIN CONVERTING ENZYME INHIBITOR [Concomitant]
  12. ADENOSINE DIPHOSPHATE ANTAGONIST [Concomitant]
  13. DIURETICS [Concomitant]

REACTIONS (3)
  - Tibia fracture [Recovering/Resolving]
  - Fibula fracture [Recovering/Resolving]
  - Fall [None]
